FAERS Safety Report 22311330 (Version 1)
Quarter: 2023Q2

REPORT INFORMATION
  Report Type: Report from Study
  Country: US (occurrence: US)
  Receive Date: 20230511
  Receipt Date: 20230511
  Transmission Date: 20230722
  Serious: Yes (Death)
  Sender: FDA-Public Use
  Company Number: US-TAIHOP-2023-002714

PATIENT
  Sex: Female
  Weight: 58.01 kg

DRUGS (2)
  1. LONSURF [Suspect]
     Active Substance: TIPIRACIL HYDROCHLORIDE\TRIFLURIDINE
     Indication: Rectal cancer
     Dosage: DOSAGE-40 MG IN MORNING AND 60 MG IN EVENING?LAST CYCLE UNKNOWN?DAILY DOSE: 100 MILLIGRAM(S)
     Route: 048
     Dates: start: 20230227
  2. BEVACIZUMAB [Suspect]
     Active Substance: BEVACIZUMAB
     Indication: Rectal cancer
     Dosage: DOSE AND FREQUENCY UNKNOWN
     Route: 050

REACTIONS (2)
  - Death [Fatal]
  - Disease progression [Unknown]
